FAERS Safety Report 8789143 (Version 1)
Quarter: 2012Q4

REPORT INFORMATION
  Report Type: Spontaneous
  Country: US (occurrence: None)
  Receive Date: 20120910
  Receipt Date: 20120910
  Transmission Date: 20130627
  Serious: No
  Sender: FDA-Public Use
  Company Number: None

PATIENT
  Age: 73 Year
  Sex: Female
  Weight: 65.77 kg

DRUGS (1)
  1. ZETIA [Suspect]

REACTIONS (5)
  - Dysphagia [None]
  - Fatigue [None]
  - Pain in extremity [None]
  - Constipation [None]
  - Rash [None]
